FAERS Safety Report 7268363-X (Version None)
Quarter: 2011Q1

REPORT INFORMATION
  Report Type: 
  Country: None (occurrence: None)
  Receive Date: 20110121
  Receipt Date: 20110107
  Transmission Date: 20110831
  Serious: Yes (Disabling)
  Sender: FDA-Public Use
  Company Number: DSJ-2011-00304

PATIENT
  Sex: Female
  Weight: 70 kg

DRUGS (7)
  1. DEPAS (ETIZOLAM) (ETIZOLAM) [Concomitant]
  2. TENORMIN [Concomitant]
  3. CARVEDILOL [Concomitant]
  4. PERDIPINE-LA (NICARDIPINE HYDROCHLORIDE) (NICARDIPINE HYDROCHLORIDE) [Concomitant]
  5. CONIEL (BENIDIPINE HYDROCHLORIDE) (BENIDIPINE HYDROCHLORIDE) [Concomitant]
  6. INDAPAMIDE [Concomitant]
  7. OLMETEC (OLMESARTAN MEDOXOMIL) (TABLET) (OLMESARTAN MEDOXOMIL) [Suspect]
     Indication: ESSENTIAL HYPERTENSION
     Dosage: 20 MG,PER ORAL
     Route: 048
     Dates: start: 20100609, end: 20100630

REACTIONS (3)
  - BLOOD PRESSURE INCREASED [None]
  - HEADACHE [None]
  - ANXIETY [None]
